FAERS Safety Report 24641109 (Version 2)
Quarter: 2024Q4

REPORT INFORMATION
  Report Type: Report from Study
  Country: US (occurrence: US)
  Receive Date: 20241120
  Receipt Date: 20241213
  Transmission Date: 20250114
  Serious: Yes (Hospitalization)
  Sender: ABBVIE
  Company Number: US-ABBVIE-6005014

PATIENT
  Age: 76 Year
  Sex: Female

DRUGS (1)
  1. HUMIRA [Suspect]
     Active Substance: ADALIMUMAB
     Indication: Rheumatoid arthritis
     Route: 058
     Dates: start: 20151116

REACTIONS (8)
  - Concussion [Recovering/Resolving]
  - Fall [Recovered/Resolved]
  - Brain fog [Unknown]
  - Cerebral haemorrhage [Recovering/Resolving]
  - Joint injury [Unknown]
  - Limb injury [Unknown]
  - Back injury [Unknown]
  - Fall [Recovering/Resolving]

NARRATIVE: CASE EVENT DATE: 20241001
